FAERS Safety Report 10062577 (Version 6)
Quarter: 2014Q2

REPORT INFORMATION
  Report Type: Spontaneous
  Country: JP (occurrence: JP)
  Receive Date: 20140407
  Receipt Date: 20140612
  Transmission Date: 20141212
  Serious: Yes (Death, Life-Threatening, Hospitalization)
  Sender: FDA-Public Use
  Company Number: JP-JNJFOC-20140318726

PATIENT
  Age: 71 Year
  Sex: Female
  Weight: 44 kg

DRUGS (4)
  1. REMICADE [Suspect]
     Indication: RHEUMATOID ARTHRITIS
     Dosage: RECEIVED 13 TH DOSE OF INFLIXIMAB
     Route: 042
     Dates: start: 20120706
  2. REMICADE [Suspect]
     Indication: RHEUMATOID ARTHRITIS
     Route: 042
     Dates: start: 20100914
  3. RHEUMATREX [Suspect]
     Indication: RHEUMATOID ARTHRITIS
     Dosage: 6/W
     Route: 048
     Dates: end: 20120708
  4. PENICILLAMINE [Suspect]
     Indication: RHEUMATOID ARTHRITIS
     Route: 065

REACTIONS (4)
  - Histiocytosis haematophagic [Fatal]
  - Listeriosis [Fatal]
  - Septic shock [Unknown]
  - Disseminated intravascular coagulation [Unknown]
